FAERS Safety Report 4543086-6 (Version None)
Quarter: 2004Q4

REPORT INFORMATION
  Report Type: 
  Country: None (occurrence: None)
  Receive Date: 20041229
  Receipt Date: 20041216
  Transmission Date: 20050328
  Serious: Yes (Death)
  Sender: FDA-Public Use
  Company Number: 25878

PATIENT
  Age: 91 Year
  Sex: Female

DRUGS (1)
  1. ALDARA [Suspect]
     Indication: BASAL CELL CARCINOMA
     Dosage: 1 SACHET (1 SACHET, 5 IN 1 WEEK (S)), TOPICAL
     Route: 061
     Dates: start: 20041001

REACTIONS (4)
  - APPLICATION SITE BLEEDING [None]
  - EATING DISORDER [None]
  - SCAB [None]
  - TREATMENT NONCOMPLIANCE [None]
